FAERS Safety Report 25491641 (Version 1)
Quarter: 2025Q2

REPORT INFORMATION
  Report Type: Spontaneous
  Country: JP (occurrence: JP)
  Receive Date: 20250629
  Receipt Date: 20250629
  Transmission Date: 20250717
  Serious: Yes (Hospitalization, Other)
  Sender: MERCK SHARP & DOHME LLC
  Company Number: JP-009507513-2298469

PATIENT
  Age: 44 Year
  Sex: Male

DRUGS (5)
  1. KEYTRUDA [Suspect]
     Active Substance: PEMBROLIZUMAB
     Indication: Nasal cavity cancer
     Route: 065
  2. FLUOROURACIL [Suspect]
     Active Substance: FLUOROURACIL
     Indication: Nasal cavity cancer
     Route: 065
  3. CISPLATIN [Suspect]
     Active Substance: CISPLATIN
     Indication: Nasal cavity cancer
     Route: 065
  4. PACLITAXEL [Suspect]
     Active Substance: PACLITAXEL
     Indication: Nasal cavity cancer
     Route: 065
  5. CETUXIMAB [Suspect]
     Active Substance: CETUXIMAB
     Indication: Nasal cavity cancer
     Route: 065

REACTIONS (7)
  - Immune-mediated mucositis [Recovering/Resolving]
  - Therapy partial responder [Unknown]
  - Malignant neoplasm progression [Unknown]
  - Penile erosion [Unknown]
  - Rash erythematous [Recovering/Resolving]
  - Hypophagia [Unknown]
  - Toxic epidermal necrolysis [Unknown]
